FAERS Safety Report 16107989 (Version 1)
Quarter: 2019Q1

REPORT INFORMATION
  Report Type: Spontaneous
  Country: ES (occurrence: ES)
  Receive Date: 20190322
  Receipt Date: 20190322
  Transmission Date: 20190418
  Serious: Yes (Other)
  Sender: FDA-Public Use
  Company Number: PHHY2019ES063348

PATIENT
  Age: 61 Year
  Sex: Male
  Weight: 120 kg

DRUGS (3)
  1. ALGIDOL [Concomitant]
     Active Substance: ACETAMINOPHEN\ASCORBIC ACID\CODEINE
     Indication: BRONCHITIS
     Dosage: 1 DF, UNK
     Route: 048
     Dates: start: 20190214, end: 20190220
  2. AMOXICILLIN. [Suspect]
     Active Substance: AMOXICILLIN
     Indication: BRONCHITIS
     Dosage: 750 MG, Q8H
     Route: 048
     Dates: start: 20190213, end: 20190227
  3. METAMIZOLE [Concomitant]
     Active Substance: METAMIZOLE
     Indication: BRONCHITIS
     Dosage: 575 MG, UNK
     Route: 048
     Dates: start: 20190213, end: 20190227

REACTIONS (1)
  - Abdominal wall haematoma [Recovering/Resolving]

NARRATIVE: CASE EVENT DATE: 20190217
